FAERS Safety Report 6603320-5 (Version None)
Quarter: 2010Q1

REPORT INFORMATION
  Report Type: 
  Country: None (occurrence: None)
  Receive Date: 20100226
  Receipt Date: 20090309
  Transmission Date: 20100710
  Serious: No
  Sender: FDA-Public Use
  Company Number: A0764535A

PATIENT
  Age: 44 Year
  Sex: Female

DRUGS (12)
  1. VALTREX [Suspect]
     Dosage: 1G SINGLE DOSE
     Route: 048
     Dates: start: 20090119, end: 20090119
  2. POLYSPORIN OINTMENT [Concomitant]
  3. BENADRYL [Concomitant]
  4. CORTISONE SHOT [Concomitant]
  5. IBUPROFEN [Concomitant]
  6. MULTI-VITAMIN [Concomitant]
  7. VITAMIN D CALCIUM [Concomitant]
  8. RHEUMATREX [Concomitant]
  9. SUPER B COMPLEX [Concomitant]
  10. ZETIA [Concomitant]
  11. OMEPRAZOLE [Concomitant]
  12. MAGNESIUM [Concomitant]

REACTIONS (2)
  - LIP SWELLING [None]
  - RASH PRURITIC [None]
